FAERS Safety Report 20137652 (Version 2)
Quarter: 2021Q4

REPORT INFORMATION
  Report Type: Report from Study
  Country: CO (occurrence: CO)
  Receive Date: 20211201
  Receipt Date: 20211217
  Transmission Date: 20220303
  Serious: Yes (Other)
  Sender: FDA-Public Use
  Company Number: CO-ABBVIE-21K-036-4153610-00

PATIENT
  Sex: Male
  Weight: 90 kg

DRUGS (6)
  1. HUMIRA [Suspect]
     Active Substance: ADALIMUMAB
     Indication: Psoriasis
     Route: 058
     Dates: start: 20190911
  2. INSULIN LISPRO [Concomitant]
     Active Substance: INSULIN LISPRO
     Indication: Product used for unknown indication
     Dosage: AFTER BREAKFAST, LUNCH AND DINNER
  3. INSULIN GLARGINE [Concomitant]
     Active Substance: INSULIN GLARGINE
     Indication: Product used for unknown indication
     Dosage: EVERY NIGHT
  4. AMLODIPINE [Concomitant]
     Active Substance: AMLODIPINE BESYLATE
     Indication: Product used for unknown indication
  5. LEVOTHYROXINE [Concomitant]
     Active Substance: LEVOTHYROXINE
     Indication: Thyroid disorder
     Dosage: 1 DAILY ON AN EMPTY STOMACH
  6. LOSARTAN [Concomitant]
     Active Substance: LOSARTAN
     Indication: Product used for unknown indication
     Dosage: 1 EVERY 12 HOURS

REACTIONS (11)
  - Upper limb fracture [Recovering/Resolving]
  - Ligament rupture [Recovering/Resolving]
  - Rotator cuff syndrome [Unknown]
  - Dizziness [Recovering/Resolving]
  - Intervertebral disc disorder [Recovering/Resolving]
  - Weight increased [Recovering/Resolving]
  - Discomfort [Recovering/Resolving]
  - Myalgia [Not Recovered/Not Resolved]
  - Headache [Recovering/Resolving]
  - Arthralgia [Not Recovered/Not Resolved]
  - Diarrhoea [Not Recovered/Not Resolved]

NARRATIVE: CASE EVENT DATE: 20200101
